FAERS Safety Report 14471454 (Version 4)
Quarter: 2018Q2

REPORT INFORMATION
  Report Type: Spontaneous
  Country: US (occurrence: US)
  Receive Date: 20180131
  Receipt Date: 20180608
  Transmission Date: 20180711
  Serious: Yes (Hospitalization)
  Sender: FDA-Public Use
  Company Number: US-PFIZER INC-2018038702

PATIENT
  Age: 73 Year
  Sex: Female

DRUGS (6)
  1. LYRICA [Suspect]
     Active Substance: PREGABALIN
     Indication: MYALGIA
     Dosage: 100 MG, TWICE DAILY
     Dates: start: 2016
  2. PRAVACHOL [Concomitant]
     Active Substance: PRAVASTATIN SODIUM
     Indication: MYOCARDIAL ISCHAEMIA
     Dosage: 40 MG (1 DF), DAILY
  3. CALCIUM VIT D [Concomitant]
     Active Substance: CALCIUM\CHOLECALCIFEROL
     Indication: OVARIAN CANCER
  4. NORCO [Concomitant]
     Active Substance: ACETAMINOPHEN\HYDROCODONE BITARTRATE
     Indication: INTERVERTEBRAL DISC DEGENERATION
     Dosage: 2 TABLETS (DF), EVERY 8 HOURS
  5. CALCIUM VIT D [Concomitant]
     Active Substance: CALCIUM\CHOLECALCIFEROL
     Indication: OSTEOPOROSIS
     Dosage: 1 DF, TWICE DAILY
     Dates: start: 2016
  6. SENNA LAXATIVE [Concomitant]
     Active Substance: SENNOSIDES
     Indication: OVARIAN CANCER
     Dosage: 8.6 MG (1 DF), TWICE DAILY
     Dates: start: 2016

REACTIONS (2)
  - Neoplasm recurrence [Not Recovered/Not Resolved]
  - Product use in unapproved indication [Unknown]

NARRATIVE: CASE EVENT DATE: 2016
